FAERS Safety Report 9155102 (Version 1)
Quarter: 2013Q1

REPORT INFORMATION
  Report Type: Report from Study
  Country: FR (occurrence: FR)
  Receive Date: 20130311
  Receipt Date: 20130311
  Transmission Date: 20140127
  Serious: Yes (Death, Hospitalization)
  Sender: FDA-Public Use
  Company Number: FR-PFIZER INC-2013060072

PATIENT
  Age: 55 Year
  Sex: Male

DRUGS (1)
  1. TORISEL [Suspect]
     Indication: MANTLE CELL LYMPHOMA
     Dosage: 75 MG, WEEKLY
     Dates: start: 20111005, end: 20111021

REACTIONS (7)
  - Disease progression [Fatal]
  - Mantle cell lymphoma [Fatal]
  - Pancytopenia [Unknown]
  - Anaemia [Unknown]
  - Thrombocytopenia [Unknown]
  - Pseudomonal sepsis [Unknown]
  - Bacterial infection [Not Recovered/Not Resolved]
